FAERS Safety Report 21366390 (Version 2)
Quarter: 2022Q4

REPORT INFORMATION
  Report Type: Spontaneous
  Country: JP (occurrence: JP)
  Receive Date: 20220922
  Receipt Date: 20221009
  Transmission Date: 20230112
  Serious: No
  Sender: FDA-Public Use
  Company Number: JP-KYOWAKIRIN-2022AKK014323

PATIENT
  Age: 9 Decade
  Sex: Male

DRUGS (1)
  1. DARBEPOETIN ALFA [Suspect]
     Active Substance: DARBEPOETIN ALFA
     Indication: Nephrogenic anaemia
     Dosage: 180 MICROGRAM, Q4WK
     Route: 042

REACTIONS (1)
  - No adverse event [Unknown]
